FAERS Safety Report 16963388 (Version 2)
Quarter: 2019Q4

REPORT INFORMATION
  Report Type: Spontaneous
  Country: FR (occurrence: FR)
  Receive Date: 20191025
  Receipt Date: 20191114
  Transmission Date: 20200122
  Serious: Yes (Life-Threatening, Hospitalization, Congenital Anomaly, Other)
  Sender: FDA-Public Use
  Company Number: FR-GLAXOSMITHKLINE-B0539423A

PATIENT
  Age: 0 Year
  Sex: Female
  Weight: .93 kg

DRUGS (10)
  1. ZANIDIP [Suspect]
     Active Substance: LERCANIDIPINE HYDROCHLORIDE
     Indication: PRODUCT USED FOR UNKNOWN INDICATION
     Dosage: UNK
     Route: 064
     Dates: end: 20070216
  2. INSULIN PORCINE [Concomitant]
     Active Substance: INSULIN PORK\INSULIN PURIFIED PORK
     Indication: PRODUCT USED FOR UNKNOWN INDICATION
     Route: 064
     Dates: start: 20070215
  3. ATARAX [Suspect]
     Active Substance: HYDROXYZINE HYDROCHLORIDE
     Indication: PRODUCT USED FOR UNKNOWN INDICATION
     Dosage: UNK (100)
     Route: 064
     Dates: start: 200702
  4. AVANDIA [Suspect]
     Active Substance: ROSIGLITAZONE MALEATE
     Indication: TYPE 2 DIABETES MELLITUS
     Dosage: UNK
     Route: 064
     Dates: end: 20070216
  5. EFFEXOR [Suspect]
     Active Substance: VENLAFAXINE HYDROCHLORIDE
     Indication: PRODUCT USED FOR UNKNOWN INDICATION
     Dosage: UNK
     Route: 064
  6. LOXEN (LOXOPROFEN SODIUM) [Concomitant]
     Active Substance: LOXOPROFEN SODIUM
     Indication: PRODUCT USED FOR UNKNOWN INDICATION
     Dosage: UNK
     Route: 064
  7. MEPRONIZINE [Suspect]
     Active Substance: ACEPROMETAZINE MALEATE\MEPROBAMATE
     Indication: PRODUCT USED FOR UNKNOWN INDICATION
     Dosage: UNK
     Route: 064
     Dates: start: 200503
  8. ALDOMET [Suspect]
     Active Substance: METHYLDOPA
     Indication: PRODUCT USED FOR UNKNOWN INDICATION
     Dosage: UNK
     Route: 064
     Dates: start: 20070220, end: 20070428
  9. TRANDATE [Concomitant]
     Active Substance: LABETALOL HYDROCHLORIDE
     Indication: PRODUCT USED FOR UNKNOWN INDICATION
     Dosage: UNK
     Route: 064
  10. LABETALOL [Concomitant]
     Active Substance: LABETALOL\LABETALOL HYDROCHLORIDE
     Indication: PRODUCT USED FOR UNKNOWN INDICATION
     Dosage: UNK
     Route: 065

REACTIONS (11)
  - Bronchopulmonary dysplasia [Recovering/Resolving]
  - Low birth weight baby [Unknown]
  - Neonatal respiratory distress syndrome [Recovering/Resolving]
  - Jaundice neonatal [Recovering/Resolving]
  - Premature baby [Recovering/Resolving]
  - Hypotonia [Recovering/Resolving]
  - Pulmonary arterial hypertension [Recovering/Resolving]
  - Patent ductus arteriosus [Recovering/Resolving]
  - Maternal exposure during pregnancy [Unknown]
  - Foetal growth restriction [Recovering/Resolving]
  - Foetal arrhythmia [Recovering/Resolving]

NARRATIVE: CASE EVENT DATE: 20070427
